FAERS Safety Report 6778848-8 (Version None)
Quarter: 2010Q2

REPORT INFORMATION
  Report Type: 
  Country: None (occurrence: None)
  Receive Date: 20100618
  Receipt Date: 20100608
  Transmission Date: 20101027
  Serious: Yes (Other)
  Sender: FDA-Public Use
  Company Number: CA-JNJFOC-20100603274

PATIENT
  Sex: Male
  Weight: 89.5 kg

DRUGS (4)
  1. REMICADE [Suspect]
     Indication: RHEUMATOID ARTHRITIS
     Dosage: HAS HAD 11 DOSES OF INLFIXIMAB
     Route: 042
  2. REMICADE [Suspect]
     Dosage: HAS HAD 11 DOSES OF INLFIXIMAB
     Route: 042
  3. CELEBREX [Concomitant]
  4. PREDNISONE [Concomitant]

REACTIONS (3)
  - DERMATITIS CONTACT [None]
  - PHARYNGEAL OEDEMA [None]
  - URTICARIA [None]
